FAERS Safety Report 20643899 (Version 1)
Quarter: 2022Q1

REPORT INFORMATION
  Report Type: Spontaneous
  Country: US (occurrence: None)
  Receive Date: 20220327
  Receipt Date: 20220327
  Transmission Date: 20220423
  Serious: No
  Sender: FDA-Public Use
  Company Number: None

PATIENT
  Age: 35 Year
  Sex: Female
  Weight: 48.6 kg

DRUGS (3)
  1. EMGALITY [Suspect]
     Active Substance: GALCANEZUMAB-GNLM
     Indication: Migraine
     Route: 058
     Dates: start: 20211017, end: 20220217
  2. LAMICTAL [Concomitant]
     Active Substance: LAMOTRIGINE
  3. cetirazine [Concomitant]

REACTIONS (10)
  - Condition aggravated [None]
  - Nausea [None]
  - Dizziness [None]
  - Scintillating scotoma [None]
  - Hemiplegia [None]
  - Paraesthesia [None]
  - Confusional state [None]
  - Migraine [None]
  - Drug interaction [None]
  - Photosensitivity reaction [None]

NARRATIVE: CASE EVENT DATE: 20211201
